FAERS Safety Report 5206920-2 (Version None)
Quarter: 2007Q1

REPORT INFORMATION
  Report Type: 
  Country: None (occurrence: None)
  Receive Date: 20070105
  Receipt Date: 20070105
  Transmission Date: 20070707
  Serious: Yes (Hospitalization)
  Sender: FDA-Public Use
  Company Number: None

PATIENT
  Age: 37 Year
  Sex: Male
  Weight: 123 kg

DRUGS (4)
  1. APAP [Suspect]
     Indication: PAIN
     Dosage: 2.5 G Q 4? PO PRN
     Route: 048
     Dates: start: 20061022, end: 20061024
  2. LOVASTATIN [Concomitant]
  3. LISINOPRIL [Concomitant]
  4. COCAINE [Concomitant]

REACTIONS (3)
  - HEPATITIS ACUTE [None]
  - INCORRECT DOSE ADMINISTERED [None]
  - INTERNATIONAL NORMALISED RATIO INCREASED [None]
